FAERS Safety Report 25038794 (Version 1)
Quarter: 2025Q1

REPORT INFORMATION
  Report Type: Spontaneous
  Country: NZ (occurrence: NZ)
  Receive Date: 20250304
  Receipt Date: 20250304
  Transmission Date: 20250408
  Serious: Yes (Hospitalization, Other)
  Sender: CURRAX PHARMACEUTICALS
  Company Number: NZ-INOVA PHARMACEUTICALS (SINGAPORE) PTE LIMITED-2025COMG000878

PATIENT
  Sex: Male

DRUGS (9)
  1. CONTRAVE [Suspect]
     Active Substance: BUPROPION HYDROCHLORIDE\NALTREXONE HYDROCHLORIDE
     Indication: Weight control
     Dosage: 1 DOSAGE FORM, QD (1 MANE)
     Route: 065
     Dates: start: 20220220, end: 20220224
  2. PRADAXA [Concomitant]
     Active Substance: DABIGATRAN ETEXILATE MESYLATE
     Indication: Thrombosis prophylaxis
     Route: 048
  3. ROSUVASTATIN [Concomitant]
     Active Substance: ROSUVASTATIN
     Indication: Lipids increased
  4. CANDESARTAN [Concomitant]
     Active Substance: CANDESARTAN
     Indication: Hypertension
  5. PANTOPRAZOLE [Concomitant]
     Active Substance: PANTOPRAZOLE
     Indication: Product used for unknown indication
  6. ACUPAN [Concomitant]
     Active Substance: NEFOPAM HYDROCHLORIDE
     Indication: Pain
  7. EZETIMIBE [Concomitant]
     Active Substance: EZETIMIBE
     Indication: Blood cholesterol abnormal
  8. SYMBICORT [Concomitant]
     Active Substance: BUDESONIDE\FORMOTEROL FUMARATE DIHYDRATE
     Indication: Asthma
  9. TAMSULOSIN [Concomitant]
     Active Substance: TAMSULOSIN
     Indication: Prostatic disorder

REACTIONS (4)
  - Pancreatitis acute [Unknown]
  - Dizziness [Recovered/Resolved]
  - Nausea [Recovered/Resolved]
  - Contraindicated product administered [Unknown]

NARRATIVE: CASE EVENT DATE: 20220224
